FAERS Safety Report 6032516-9 (Version None)
Quarter: 2009Q1

REPORT INFORMATION
  Report Type: 
  Country: None (occurrence: None)
  Receive Date: 20090109
  Receipt Date: 20081028
  Transmission Date: 20090719
  Serious: No
  Sender: FDA-Public Use
  Company Number: A0753896A

PATIENT
  Age: 69 Year
  Sex: Female

DRUGS (4)
  1. TYKERB [Suspect]
     Indication: BREAST CANCER
     Dosage: 1000MG PER DAY
     Route: 048
     Dates: start: 20081013
  2. XELODA [Concomitant]
  3. MINI ASPIRIN [Concomitant]
  4. TYLENOL (CAPLET) [Concomitant]
     Route: 048

REACTIONS (4)
  - ABDOMINAL DISCOMFORT [None]
  - CONSTIPATION [None]
  - DIARRHOEA [None]
  - GASTROINTESTINAL SOUNDS ABNORMAL [None]
